FAERS Safety Report 25342832 (Version 1)
Quarter: 2025Q2

REPORT INFORMATION
  Report Type: Spontaneous
  Country: RO (occurrence: RO)
  Receive Date: 20250521
  Receipt Date: 20250521
  Transmission Date: 20250716
  Serious: Yes (Other)
  Sender: NOVARTIS
  Company Number: RO-PFIZER INC-PV202500054518

PATIENT
  Age: 60 Year
  Sex: Female

DRUGS (3)
  1. ZOLEDRONIC ACID [Suspect]
     Active Substance: ZOLEDRONIC ACID
     Indication: Breast cancer stage IV
     Route: 065
     Dates: start: 201905
  2. LETROZOLE [Suspect]
     Active Substance: LETROZOLE
     Indication: Breast cancer stage IV
     Route: 065
     Dates: start: 201905
  3. IBRANCE [Suspect]
     Active Substance: PALBOCICLIB
     Indication: Breast cancer stage IV
     Route: 065
     Dates: start: 201905

REACTIONS (5)
  - Metastases to lung [Unknown]
  - Metastases to peritoneum [Unknown]
  - Metastases to pelvis [Unknown]
  - Metastases to ovary [Unknown]
  - Neutropenia [Unknown]

NARRATIVE: CASE EVENT DATE: 20220501
